FAERS Safety Report 11379707 (Version 1)
Quarter: 2015Q3

REPORT INFORMATION
  Report Type: Spontaneous
  Country: CA (occurrence: None)
  Receive Date: 20150813
  Receipt Date: 20150813
  Transmission Date: 20151125
  Serious: Yes (Hospitalization, Disabling)
  Sender: FDA-Public Use
  Company Number: None

PATIENT
  Age: 22 Year
  Sex: Female

DRUGS (1)
  1. SEROQUEL XR [Suspect]
     Active Substance: QUETIAPINE FUMARATE
     Indication: BIPOLAR DISORDER
     Route: 048

REACTIONS (6)
  - Mental disorder [None]
  - Wrist fracture [None]
  - Depression [None]
  - Fall [None]
  - Nerve injury [None]
  - Rib fracture [None]

NARRATIVE: CASE EVENT DATE: 20150803
